FAERS Safety Report 6986385-0 (Version None)
Quarter: 2010Q3

REPORT INFORMATION
  Report Type: 
  Country: None (occurrence: None)
  Receive Date: 20100915
  Receipt Date: 20090626
  Transmission Date: 20110219
  Serious: No
  Sender: FDA-Public Use
  Company Number: US-WYE-H09938809

PATIENT
  Age: 40 Year
  Sex: Female
  Weight: 47.67 kg

DRUGS (2)
  1. PRISTIQ [Suspect]
     Indication: DEPRESSION
     Route: 048
     Dates: start: 20081101, end: 20090601
  2. PRISTIQ [Suspect]
     Indication: PREMENSTRUAL SYNDROME
     Dosage: ^CUT TABLET IN HALF DAILY^
     Route: 048
     Dates: start: 20090601

REACTIONS (5)
  - ASTHENIA [None]
  - DIZZINESS [None]
  - DRUG WITHDRAWAL SYNDROME [None]
  - FATIGUE [None]
  - PARAESTHESIA [None]
